FAERS Safety Report 8123659-4 (Version None)
Quarter: 2012Q1

REPORT INFORMATION
  Report Type: 
  Country: None (occurrence: None)
  Receive Date: 20120208
  Receipt Date: 20120206
  Transmission Date: 20120608
  Serious: Yes (Hospitalization, Other)
  Sender: FDA-Public Use
  Company Number: PHEH2008US01437

PATIENT
  Sex: Female

DRUGS (67)
  1. CLINDAMYCIN [Concomitant]
  2. GABAPENTIN [Concomitant]
  3. MECLIZINE [Concomitant]
  4. ORPHENADRINE CITRATE [Concomitant]
     Dosage: 100 MG, BID
  5. CLINORIL [Concomitant]
  6. QUININE SULFATE [Concomitant]
  7. NORVASC [Concomitant]
  8. VICODIN [Concomitant]
  9. MOBIC [Concomitant]
  10. TORADOL [Concomitant]
  11. CIPROFLOXACIN [Concomitant]
  12. CYCLOBENZAPRINE HCL [Concomitant]
     Dosage: 10 MG, TID, PRN
  13. METOPROLOL [Concomitant]
     Dosage: 50 MG, BID
  14. CLONIDINE HYDROCHLORIDE [Concomitant]
     Dosage: 0.1 MG, Q4H
  15. ANCEF [Concomitant]
     Dosage: 1 G, Q8H
  16. ACETAMINOPHEN AND HYDROCODONE BITARTRATE [Concomitant]
  17. UNIVASC [Concomitant]
  18. EFFEXOR [Concomitant]
  19. SPIRONOLACTONE [Concomitant]
  20. SULINDAC [Concomitant]
  21. PEPCID [Concomitant]
  22. MIRALAX [Concomitant]
     Dosage: 17 G, QD
  23. OMEPRAZOLE [Concomitant]
  24. MYTUSSIN DAC [Concomitant]
  25. NEXIUM [Concomitant]
  26. DESOXIMETASONE [Concomitant]
  27. LISINOPRIL [Concomitant]
  28. DOCUSATE [Concomitant]
  29. PROTONIX [Concomitant]
     Dosage: 40 MG, QHS
     Route: 048
  30. ONDANSETRON HCL [Suspect]
     Dosage: 4 MG/2ML, Q8H
     Route: 042
  31. ORPHENADRINE CITRATE [Concomitant]
  32. FLUOXETINE [Concomitant]
  33. SUCRALFATE [Concomitant]
  34. DAPSONE [Concomitant]
  35. HYDROCORTISONE [Concomitant]
     Dosage: 10 MG, BID
  36. ULTRAM [Concomitant]
  37. IMODIUM [Concomitant]
  38. MICONAZOLE NITRATE [Concomitant]
  39. PHENERGAN [Concomitant]
  40. ZOMETA [Suspect]
     Dosage: 3.3 MG, UNK
  41. TRIAMTERENE AND HYDROCHLOROTHIAZIDE [Concomitant]
  42. DIPHENHYDRAMINE HCL [Concomitant]
  43. FUROSEMIDE [Concomitant]
  44. MIRAPEX [Concomitant]
  45. AMBIEN [Concomitant]
  46. VYTONE [Concomitant]
     Dosage: UNK MG, TID
     Route: 061
     Dates: start: 20080123
  47. KEFLEX [Concomitant]
  48. ARMODAFINIL [Concomitant]
     Dosage: 150 MG, QD
  49. CITALOPRAM HYDROCHLORIDE [Concomitant]
  50. PERCOCET [Concomitant]
     Dosage: 5 - 325 MG, Q4H
     Route: 048
  51. PROCHLORPERAZINE [Concomitant]
  52. ATENOLOL [Concomitant]
  53. VENLAFAXINE [Concomitant]
  54. DEPO-MEDROL [Concomitant]
     Dosage: 80 MG, QMO
  55. DIPHENOXYLATE HCL AND ATROPINE SULFATE [Concomitant]
  56. COMPAZINE [Concomitant]
  57. ZOMETA [Suspect]
     Indication: OSTEOPOROSIS
     Dosage: 4 MG, DAILY
     Dates: start: 20050712, end: 20060706
  58. ARIMIDEX [Concomitant]
  59. TRAMADOL HCL [Concomitant]
  60. NAPROXEN [Concomitant]
  61. CEPHALEXIN [Concomitant]
  62. AMOXICILLIN AND CLAVULANATE POTASSIUM [Concomitant]
  63. BENICAR [Concomitant]
  64. CHLORDIAZEPOXIDE W/CLIDINIUM BROMIDE [Concomitant]
  65. MEPERIDINE HCL [Concomitant]
  66. DIOVAN [Concomitant]
  67. ARICEPT [Concomitant]
     Dosage: 1 MG, QD

REACTIONS (84)
  - BURSITIS [None]
  - PAIN [None]
  - GLARE [None]
  - VITREOUS FLOATERS [None]
  - DERMATITIS CONTACT [None]
  - ABSCESS [None]
  - ILEITIS [None]
  - LUMBAR SPINAL STENOSIS [None]
  - VERTEBRAL FORAMINAL STENOSIS [None]
  - DYSPEPSIA [None]
  - RHEUMATOID ARTHRITIS [None]
  - GAIT DISTURBANCE [None]
  - INSOMNIA [None]
  - GLAUCOMA [None]
  - PYODERMA GANGRENOSUM [None]
  - JOINT DISLOCATION [None]
  - SKIN ULCER [None]
  - OSTEONECROSIS OF JAW [None]
  - ECZEMA [None]
  - DRY EYE [None]
  - ABDOMINAL PAIN [None]
  - VISUAL IMPAIRMENT [None]
  - CONSTIPATION [None]
  - RESPIRATORY TRACT CONGESTION [None]
  - OEDEMA PERIPHERAL [None]
  - HYPOAESTHESIA [None]
  - FLATULENCE [None]
  - INCREASED TENDENCY TO BRUISE [None]
  - EXCORIATION [None]
  - ROTATOR CUFF SYNDROME [None]
  - RESORPTION BONE INCREASED [None]
  - INTERTRIGO [None]
  - ROAD TRAFFIC ACCIDENT [None]
  - BONE LOSS [None]
  - VISION BLURRED [None]
  - FACIAL PAIN [None]
  - FATIGUE [None]
  - ANKLE FRACTURE [None]
  - PRURITUS [None]
  - OTITIS MEDIA [None]
  - GASTROOESOPHAGEAL REFLUX DISEASE [None]
  - INFLAMMATORY BOWEL DISEASE [None]
  - URINARY INCONTINENCE [None]
  - COLITIS [None]
  - VULVOVAGINAL MYCOTIC INFECTION [None]
  - DYSPNOEA [None]
  - VENOUS INSUFFICIENCY [None]
  - DEMENTIA [None]
  - PAIN IN JAW [None]
  - CORNEAL DYSTROPHY [None]
  - LEFT ATRIAL DILATATION [None]
  - DIARRHOEA [None]
  - DRY MOUTH [None]
  - CONJUNCTIVOCHALASIS [None]
  - BACK PAIN [None]
  - DEEP VEIN THROMBOSIS [None]
  - ORAL DISCOMFORT [None]
  - TOOTH LOSS [None]
  - ULNAR NEURITIS [None]
  - ANXIETY [None]
  - FALL [None]
  - GASTRITIS [None]
  - HYPONATRAEMIA [None]
  - MUCOSAL INFLAMMATION [None]
  - DIVERTICULUM [None]
  - OBESITY [None]
  - CYSTITIS [None]
  - VARICOSE ULCERATION [None]
  - OSTEOPENIA [None]
  - GENERAL PHYSICAL HEALTH DETERIORATION [None]
  - SYNCOPE [None]
  - MICROANGIOPATHY [None]
  - WOUND INFECTION PSEUDOMONAS [None]
  - MELANOSIS COLI [None]
  - ELECTROCARDIOGRAM T WAVE ABNORMAL [None]
  - RADICULOPATHY [None]
  - OSTEONECROSIS [None]
  - LOOSE TOOTH [None]
  - CATARACT [None]
  - ABDOMINAL PAIN LOWER [None]
  - JOINT SWELLING [None]
  - INGROWING NAIL [None]
  - VARICOSE VEIN [None]
  - TENDON DISORDER [None]
